FAERS Safety Report 21690065 (Version 1)
Quarter: 2022Q4

REPORT INFORMATION
  Report Type: Spontaneous
  Country: CN (occurrence: CN)
  Receive Date: 20221206
  Receipt Date: 20221206
  Transmission Date: 20230113
  Serious: Yes (Hospitalization, Other)
  Sender: FDA-Public Use
  Company Number: CN-009507513-2212CHN001500

PATIENT
  Sex: Male

DRUGS (1)
  1. KEYTRUDA [Suspect]
     Active Substance: PEMBROLIZUMAB
     Indication: Bladder cancer
     Dosage: 200 MG, EVERY 21 DAYS, IV DRIP
     Route: 041
     Dates: start: 20220509, end: 20221012

REACTIONS (8)
  - Acute kidney injury [Recovering/Resolving]
  - Dizziness [Unknown]
  - Hydronephrosis [Unknown]
  - Rash [Recovered/Resolved]
  - Blood pressure increased [Unknown]
  - Electrocardiogram T wave abnormal [Unknown]
  - Product use in unapproved indication [Unknown]
  - Product use issue [Unknown]

NARRATIVE: CASE EVENT DATE: 20220101
